FAERS Safety Report 11191709 (Version 1)
Quarter: 2015Q2

REPORT INFORMATION
  Report Type: Spontaneous
  Country: US (occurrence: None)
  Receive Date: 20150603
  Receipt Date: 20150603
  Transmission Date: 20150821
  Serious: No
  Sender: FDA-Public Use
  Company Number: 2015TASUS000709

PATIENT
  Age: 39 Year
  Sex: Male

DRUGS (15)
  1. COREG [Concomitant]
     Active Substance: CARVEDILOL
  2. LANTUS [Concomitant]
     Active Substance: INSULIN GLARGINE
  3. OMEPRAZOLE (OMEPRAZOLE) [Concomitant]
     Active Substance: OMEPRAZOLE
  4. SIMVASTATIN (SIMVASTATIN) [Concomitant]
     Active Substance: SIMVASTATIN
  5. MULTI (ASCORBIC ACID, BIOTIN, CHROMIUM, COPPER, FOLIC ACID, MAGNESIUM, MANGANESE, NICOTINAMIDE, PANTOTHENIC ACID, POTASSIUM, PYRIDOXINE HYDROCHLORIDE, RETINOL, RIBOFLAVIN, SELENIUM, THIAMINE, TOCOPHEROL, VITAMIN B12 NOS, ZINC) [Concomitant]
  6. LOVAZA [Concomitant]
     Active Substance: OMEGA-3-ACID ETHYL ESTERS
  7. ASPIRIN (ACETYLSALICYLIC ACID) [Concomitant]
     Active Substance: ASPIRIN
  8. RENVELA [Concomitant]
     Active Substance: SEVELAMER CARBONATE
  9. XANAX [Concomitant]
     Active Substance: ALPRAZOLAM
  10. GABAPENTIN (GABAPENTIN) [Concomitant]
     Active Substance: GABAPENTIN
  11. HETLIOZ [Suspect]
     Active Substance: TASIMELTEON
     Indication: CIRCADIAN RHYTHM SLEEP DISORDER
     Dates: start: 20141105
  12. FENOFIBRATE (FENOFIBRATE) [Concomitant]
     Active Substance: FENOFIBRATE
  13. SENSIPAR (CINACALCET HYDROCHLORIDE) [Concomitant]
  14. CALCIUM (CALCIUM CARBONATE) [Concomitant]
  15. LISINOPRIL (LISINOPRIL) [Concomitant]
     Active Substance: LISINOPRIL

REACTIONS (3)
  - Abnormal dreams [None]
  - Constipation [None]
  - Headache [None]
